FAERS Safety Report 5393898-4 (Version None)
Quarter: 2007Q3

REPORT INFORMATION
  Report Type: 
  Country: None (occurrence: None)
  Receive Date: 20070723
  Receipt Date: 20070716
  Transmission Date: 20080115
  Serious: Yes (Hospitalization, Other)
  Sender: FDA-Public Use
  Company Number: BR-AVENTIS-200716094GDDC

PATIENT
  Sex: Male
  Weight: 37 kg

DRUGS (4)
  1. LANTUS [Suspect]
     Route: 058
     Dates: start: 20050101
  2. LANTUS [Suspect]
     Route: 058
     Dates: start: 20070601
  3. HUMALOG [Concomitant]
     Dosage: DOSE: ACCORDING TO GLYCEMIA
     Route: 058
     Dates: start: 20050101
  4. NOVOLIN                            /00030501/ [Concomitant]
     Dosage: DOSE: ACCORDING TO GLYCEMIA
     Route: 058
     Dates: start: 20030101

REACTIONS (4)
  - ABDOMINAL PAIN [None]
  - HYPERGLYCAEMIA [None]
  - HYPOGLYCAEMIA [None]
  - KETOSIS [None]
